FAERS Safety Report 15163213 (Version 1)
Quarter: 2018Q3

REPORT INFORMATION
  Report Type: Report from Study
  Country: US (occurrence: US)
  Receive Date: 20180718
  Receipt Date: 20180718
  Transmission Date: 20181010
  Serious: Yes (Other)
  Sender: FDA-Public Use
  Company Number: US-BIOGEN-2018BI00608887

PATIENT
  Sex: Male

DRUGS (1)
  1. TECFIDERA [Suspect]
     Active Substance: DIMETHYL FUMARATE
     Indication: MULTIPLE SCLEROSIS
     Dosage: PATIENT STATES HE STARTED TEC IN MARCH 2017
     Route: 065
     Dates: start: 201703

REACTIONS (6)
  - Inappropriate schedule of drug administration [Not Recovered/Not Resolved]
  - Erythema [Recovered/Resolved]
  - Seizure [Recovered/Resolved with Sequelae]
  - Skin irritation [Recovered/Resolved]
  - Feeling hot [Recovered/Resolved]
  - Memory impairment [Not Recovered/Not Resolved]
